FAERS Safety Report 6277873-3 (Version None)
Quarter: 2009Q3

REPORT INFORMATION
  Report Type: 
  Country: None (occurrence: None)
  Receive Date: 20090722
  Receipt Date: 20090717
  Transmission Date: 20100115
  Serious: Yes (Hospitalization)
  Sender: FDA-Public Use
  Company Number: DE-WYE-G04068509

PATIENT
  Sex: Male
  Weight: 80 kg

DRUGS (5)
  1. TORISEL [Suspect]
     Indication: RENAL CANCER METASTATIC
     Route: 042
     Dates: start: 20081112, end: 20081112
  2. TORISEL [Suspect]
     Route: 042
     Dates: start: 20081204, end: 20081218
  3. TORISEL [Suspect]
     Route: 042
     Dates: start: 20081230, end: 20081230
  4. PAMIDRONATE DISODIUM [Concomitant]
     Dosage: 30MG (FREQUENCY UNKNOWN)
     Dates: start: 20081112, end: 20081230
  5. CLEMASTINE FUMARATE [Concomitant]
     Indication: PREMEDICATION
     Route: 042
     Dates: start: 20081112, end: 20081230

REACTIONS (1)
  - NONSPECIFIC REACTION [None]
